FAERS Safety Report 9831463 (Version 1)
Quarter: 2014Q1

REPORT INFORMATION
  Report Type: Spontaneous
  Country: TR (occurrence: TR)
  Receive Date: 20140121
  Receipt Date: 20140121
  Transmission Date: 20141002
  Serious: Yes (Death, Other)
  Sender: FDA-Public Use
  Company Number: TR-ROCHE-1332031

PATIENT
  Age: 47 Year
  Sex: Female

DRUGS (4)
  1. TRETINOIN [Suspect]
     Indication: ACUTE PROMYELOCYTIC LEUKAEMIA
     Dosage: MILLIGRAM(S)/SQ. METER 1/1 DAY
     Route: 065
  2. IDARUBICIN [Suspect]
     Indication: ACUTE PROMYELOCYTIC LEUKAEMIA
     Dosage: MILLIGRAM(S)/SQ. METER 1/1 DAY
     Route: 065
  3. IDARUBICIN [Suspect]
     Dosage: MILLIGRAM(S)/SQ. METER 1 /1 DAY
     Route: 065
  4. CYTARABINE [Suspect]
     Indication: ACUTE PROMYELOCYTIC LEUKAEMIA
     Dosage: MILLIGRAM(S)/SQ. METER 1 /1 DAY
     Route: 065

REACTIONS (4)
  - Acute respiratory distress syndrome [Fatal]
  - Multi-organ failure [Fatal]
  - Pancytopenia [Unknown]
  - Febrile neutropenia [Unknown]
